FAERS Safety Report 5529781-0 (Version None)
Quarter: 2007Q4

REPORT INFORMATION
  Report Type: 
  Country: None (occurrence: None)
  Receive Date: 20071129
  Receipt Date: 20070820
  Transmission Date: 20080405
  Serious: No
  Sender: FDA-Public Use
  Company Number: US-ABBOTT-07P-163-0378517-00

PATIENT
  Sex: Female

DRUGS (2)
  1. MERIDIA [Suspect]
     Indication: WEIGHT CONTROL
     Dosage: LOT #/EXP NOT AVAILABLE - CONSUMER AT WORK
     Route: 048
     Dates: start: 20070801
  2. LEVOTHYROXINE SODIUM [Concomitant]
     Indication: HYPOTHYROIDISM
     Route: 048

REACTIONS (2)
  - COLD SWEAT [None]
  - FEELING COLD [None]
